FAERS Safety Report 21556647 (Version 1)
Quarter: 2022Q4

REPORT INFORMATION
  Report Type: Spontaneous
  Country: NL (occurrence: NL)
  Receive Date: 20221104
  Receipt Date: 20221104
  Transmission Date: 20230113
  Serious: Yes (Life-Threatening)
  Sender: FDA-Public Use
  Company Number: None

PATIENT
  Sex: Female
  Weight: 57 kg

DRUGS (1)
  1. PROVERA [Suspect]
     Active Substance: MEDROXYPROGESTERONE ACETATE
     Indication: Endometriosis
     Dosage: 1X PER DAY 3 PIECES
     Dates: start: 20220901, end: 20221015

REACTIONS (8)
  - Fatigue [Unknown]
  - Suicidal ideation [Unknown]
  - Depression [Unknown]
  - Chest discomfort [Unknown]
  - Palpitations [Unknown]
  - Chest pain [Unknown]
  - Nervousness [Unknown]
  - Off label use [Recovered/Resolved]

NARRATIVE: CASE EVENT DATE: 20220901
